FAERS Safety Report 9037553 (Version 1)
Quarter: 2013Q1

REPORT INFORMATION
  Report Type: Spontaneous
  Country: US (occurrence: US)
  Receive Date: 20130129
  Receipt Date: 20130129
  Transmission Date: 20140127
  Serious: No
  Sender: FDA-Public Use
  Company Number: US-009507513-1301USA012452

PATIENT
  Age: 77 Year
  Sex: Female

DRUGS (5)
  1. AZASITE [Suspect]
     Indication: EYELID INFECTION
     Dosage: ONCE IN EACH EYE 4 TIMES A DAY FOR 12 DAYS
     Route: 047
     Dates: start: 20130123
  2. AZASITE [Suspect]
     Indication: LACRIMATION INCREASED
  3. LOTEMAX [Concomitant]
  4. ALPHAGAN [Concomitant]
  5. LUMIGAN [Concomitant]

REACTIONS (7)
  - Eye pruritus [Recovering/Resolving]
  - Eye pain [Recovering/Resolving]
  - Eye irritation [Recovering/Resolving]
  - Drug prescribing error [Unknown]
  - Drug dose omission [Unknown]
  - Drug dose omission [Unknown]
  - Product quality issue [Unknown]
